FAERS Safety Report 8952017 (Version 1)
Quarter: 2012Q4

REPORT INFORMATION
  Report Type: 
  Country: US (occurrence: US)
  Receive Date: 20121204
  Receipt Date: 20121204
  Transmission Date: 20130627
  Serious: No
  Sender: FDA-Public Use
  Company Number: US-AMGEN-USASP2012065498

PATIENT
  Age: 42 Year
  Sex: Female
  Weight: 85.49 kg

DRUGS (12)
  1. ENBREL [Suspect]
     Indication: RHEUMATOID ARTHRITIS
     Dosage: 50 mg, qwk
     Route: 058
     Dates: start: 20120604, end: 20121003
  2. KLOR-CON [Concomitant]
     Dosage: 10 mEq, bid
     Dates: start: 20110725
  3. LOVAZA [Concomitant]
     Dosage: 1 g, bid
     Dates: start: 20110725
  4. ZOCOR [Concomitant]
     Dosage: 20 mg, qd
     Dates: start: 20110725
  5. TRIAMTERENE AND HYDROCHLOROTHIAZID [Concomitant]
     Dosage: 37.5-25 mg, qd
     Dates: start: 20110725
  6. EXCEDRIN MIGRAINE [Concomitant]
     Indication: MIGRAINE
     Dosage: 250-250-65 mg, prn
     Dates: start: 20110725
  7. MIDRIN                             /00450801/ [Concomitant]
     Indication: MIGRAINE
     Dosage: 2 DF (65-325-100 mg), qh
     Dates: start: 20120517
  8. TRIAMCINOLONE ACETONIDE [Concomitant]
     Dosage: 0.1 %, bid
  9. PREDNISONE [Concomitant]
     Dosage: 10 mg, qd
     Route: 048
     Dates: start: 20120517
  10. HYDROCODONE W/ACETAMINOPHEN [Concomitant]
     Dosage: 5-325 mg, qh
     Route: 048
     Dates: start: 20120409
  11. TYLENOL /00020001/ [Concomitant]
     Dosage: UNK
  12. BUTALBITAL, ACETAMINOPHEN + CAFFEINE [Concomitant]
     Dosage: 50-325-40 mg, qid
     Dates: start: 20121003

REACTIONS (7)
  - Migraine [Recovered/Resolved]
  - Rash [Recovered/Resolved]
  - Nausea [Recovered/Resolved]
  - Vomiting [Recovered/Resolved]
  - Throat irritation [Recovered/Resolved]
  - Injection site rash [Unknown]
  - Injection site reaction [Unknown]
